FAERS Safety Report 17807909 (Version 2)
Quarter: 2020Q2

REPORT INFORMATION
  Report Type: Spontaneous
  Country: PT (occurrence: PT)
  Receive Date: 20200520
  Receipt Date: 20200620
  Transmission Date: 20200714
  Serious: Yes (Disabling)
  Sender: FDA-Public Use
  Company Number: PT-ACCORD-182428

PATIENT
  Age: 45 Year
  Sex: Male
  Weight: 76 kg

DRUGS (3)
  1. OXALIPLATIN. [Suspect]
     Active Substance: OXALIPLATIN
     Indication: COLON CANCER
     Route: 042
     Dates: start: 20200408, end: 20200408
  2. FOLINIC ACID [Concomitant]
     Active Substance: LEUCOVORIN
  3. FLUOROURACIL. [Suspect]
     Active Substance: FLUOROURACIL
     Indication: COLON CANCER
     Dosage: 780 MG BOLUS AND 4680 MG INFUSION 46 HOURS
     Route: 042
     Dates: start: 20200408, end: 20200409

REACTIONS (1)
  - Hepatotoxicity [Unknown]

NARRATIVE: CASE EVENT DATE: 20200422
